FAERS Safety Report 6433741-5 (Version None)
Quarter: 2009Q4

REPORT INFORMATION
  Report Type: 
  Country: None (occurrence: None)
  Receive Date: 20091110
  Receipt Date: 20091102
  Transmission Date: 20100525
  Serious: Yes (Hospitalization)
  Sender: FDA-Public Use
  Company Number: US-ROCHE-666413

PATIENT
  Sex: Male
  Weight: 68.5 kg

DRUGS (1)
  1. CAPECITABINE [Suspect]
     Indication: COLORECTAL CANCER
     Route: 048
     Dates: start: 20090902, end: 20091001

REACTIONS (2)
  - ELECTROLYTE IMBALANCE [None]
  - STAPHYLOCOCCAL ABSCESS [None]
